FAERS Safety Report 23203383 (Version 1)
Quarter: 2023Q4

REPORT INFORMATION
  Report Type: Spontaneous
  Country: BR (occurrence: BR)
  Receive Date: 20231120
  Receipt Date: 20231120
  Transmission Date: 20240110
  Serious: No
  Sender: FDA-Public Use
  Company Number: BR-Umedica-000457

PATIENT
  Age: 58 Year
  Sex: Female

DRUGS (2)
  1. CARBAMAZEPINE [Suspect]
     Active Substance: CARBAMAZEPINE
     Indication: Epilepsy
     Route: 065
  2. VALPROATE SODIUM [Concomitant]
     Active Substance: VALPROATE SODIUM
     Indication: Epilepsy
     Route: 065

REACTIONS (3)
  - Acne [Recovering/Resolving]
  - Cutaneous lupus erythematosus [Recovering/Resolving]
  - Off label use [Unknown]
